FAERS Safety Report 6171618-3 (Version None)
Quarter: 2009Q2

REPORT INFORMATION
  Report Type: 
  Country: None (occurrence: None)
  Receive Date: 20090429
  Receipt Date: 20090416
  Transmission Date: 20091009
  Serious: Yes (Hospitalization)
  Sender: FDA-Public Use
  Company Number: FR-AVENTIS-200911514FR

PATIENT
  Age: 61 Year
  Sex: Male

DRUGS (12)
  1. OFLOCET                            /00731801/ [Suspect]
     Route: 042
     Dates: start: 20090211, end: 20090218
  2. LASILIX                            /00032601/ [Suspect]
     Dates: start: 20090211, end: 20090218
  3. CALCIPARINE [Suspect]
     Indication: PROPHYLAXIS
     Route: 058
     Dates: start: 20090211, end: 20090217
  4. VELCADE [Suspect]
     Route: 042
     Dates: start: 20090209, end: 20090216
  5. TAZOCILLINE [Suspect]
     Route: 042
     Dates: start: 20090211, end: 20090223
  6. VALACYCLOVIR HCL [Suspect]
     Route: 048
     Dates: end: 20090217
  7. LYRICA [Suspect]
     Route: 048
     Dates: end: 20090218
  8. PANTOPRAZOLE SODIUM [Suspect]
     Indication: PROPHYLAXIS
     Route: 048
     Dates: start: 20090208, end: 20090217
  9. CALCIDOSE                          /00108001/ [Suspect]
     Route: 048
     Dates: start: 20090207, end: 20090218
  10. ACIDE FOLIQUE [Suspect]
     Route: 048
     Dates: start: 20090209, end: 20090218
  11. DEXAMETHASONE 4MG TAB [Concomitant]
     Dates: start: 20070101
  12. THALIDOMIDE [Concomitant]
     Dates: start: 20070101, end: 20080801

REACTIONS (12)
  - BLOOD PHOSPHORUS INCREASED [None]
  - CONFUSIONAL STATE [None]
  - ENCEPHALOPATHY [None]
  - HYPERKALAEMIA [None]
  - HYPERURICAEMIA [None]
  - HYPOCALCAEMIA [None]
  - LACTATE DEHYDROGENASE URINE INCREASED [None]
  - MYOCLONUS [None]
  - PSYCHOMOTOR RETARDATION [None]
  - RENAL FAILURE ACUTE [None]
  - SOMNOLENCE [None]
  - TUMOUR LYSIS SYNDROME [None]
